FAERS Safety Report 23514425 (Version 1)
Quarter: 2024Q1

REPORT INFORMATION
  Report Type: Spontaneous
  Country: US (occurrence: None)
  Receive Date: 20240209
  Receipt Date: 20240209
  Transmission Date: 20240410
  Serious: Yes (Other)
  Sender: FDA-Public Use
  Company Number: None

PATIENT
  Age: 53 Year
  Sex: Female
  Weight: 66.22 kg

DRUGS (1)
  1. EMGALITY [Suspect]
     Active Substance: GALCANEZUMAB-GNLM
     Indication: Migraine without aura
     Dosage: OTHER FREQUENCY : 28 DAYS;?
     Route: 003
     Dates: start: 20230112, end: 20240103

REACTIONS (3)
  - Nausea [None]
  - Migraine [None]
  - Therapy cessation [None]

NARRATIVE: CASE EVENT DATE: 20231213
